FAERS Safety Report 7303810-6 (Version None)
Quarter: 2011Q1

REPORT INFORMATION
  Report Type: 
  Country: None (occurrence: None)
  Receive Date: 20110221
  Receipt Date: 20110210
  Transmission Date: 20110831
  Serious: Yes (Death)
  Sender: FDA-Public Use
  Company Number: PL-ROCHE-759411

PATIENT
  Sex: Female
  Weight: 51 kg

DRUGS (3)
  1. XELODA [Suspect]
     Route: 048
     Dates: start: 20110113, end: 20110124
  2. FLUCONAZOLE [Concomitant]
     Indication: ANTIFUNGAL TREATMENT
     Route: 048
     Dates: start: 20110113, end: 20110120
  3. METOCLOPRAMIDUM [Concomitant]
     Indication: ANTIEMETIC SUPPORTIVE CARE
     Dosage: FREQUENCY: 2-3 X DAY
     Route: 048
     Dates: start: 20110113, end: 20110124

REACTIONS (4)
  - BONE MARROW FAILURE [None]
  - DISSEMINATED INTRAVASCULAR COAGULATION [None]
  - MULTI-ORGAN FAILURE [None]
  - ORAL DISORDER [None]
